FAERS Safety Report 8015659-X (Version None)
Quarter: 2011Q4

REPORT INFORMATION
  Report Type: 
  Country: None (occurrence: None)
  Receive Date: 20111230
  Receipt Date: 20111219
  Transmission Date: 20120403
  Serious: Yes (Death)
  Sender: FDA-Public Use
  Company Number: US-PFIZER INC-2011311470

PATIENT
  Age: 31 Year
  Sex: Male

DRUGS (5)
  1. PROPRANOLOL HCL [Suspect]
     Dosage: UNK
     Route: 048
  2. ALPRAZOLAM [Suspect]
     Dosage: UNK
     Route: 048
  3. PROPOXYPHENE HYDROCHLORIDE [Suspect]
     Dosage: UNK
     Route: 048
  4. CARISOPRODOL [Suspect]
     Dosage: UNK
     Route: 048
  5. MEPROBAMATE [Suspect]
     Dosage: UNK
     Route: 048

REACTIONS (3)
  - RESPIRATORY ARREST [None]
  - CARDIAC ARREST [None]
  - COMPLETED SUICIDE [None]
